FAERS Safety Report 8316708-1 (Version None)
Quarter: 2012Q2

REPORT INFORMATION
  Report Type: 
  Country: None (occurrence: None)
  Receive Date: 20120427
  Receipt Date: 20120419
  Transmission Date: 20120825
  Serious: Yes (Other)
  Sender: FDA-Public Use
  Company Number: US-BAYER-2012-038489

PATIENT
  Age: 37 Year
  Sex: Female

DRUGS (1)
  1. MIRENA [Suspect]
     Indication: POLYCYSTIC OVARIES
     Dosage: UNK
     Route: 015
     Dates: start: 20120417

REACTIONS (3)
  - POST PROCEDURAL HAEMORRHAGE [None]
  - ABDOMINAL DISCOMFORT [None]
  - VAGINAL HAEMORRHAGE [None]
